FAERS Safety Report 20525758 (Version 1)
Quarter: 2022Q1

REPORT INFORMATION
  Report Type: Spontaneous
  Country: GB (occurrence: GB)
  Receive Date: 20220228
  Receipt Date: 20220228
  Transmission Date: 20220424
  Serious: Yes (Other)
  Sender: FDA-Public Use
  Company Number: None

PATIENT
  Sex: Female

DRUGS (1)
  1. MONTELUKAST [Suspect]
     Active Substance: MONTELUKAST SODIUM
     Indication: Asthma
     Route: 065
     Dates: end: 20220201

REACTIONS (17)
  - Suicidal ideation [Unknown]
  - Suicide attempt [Unknown]
  - Tremor [Unknown]
  - Anxiety [Unknown]
  - Depressed mood [Unknown]
  - Aggression [Unknown]
  - Disturbance in attention [Unknown]
  - Myalgia [Unknown]
  - Daydreaming [Unknown]
  - Aphasia [Unknown]
  - Memory impairment [Unknown]
  - Abnormal dreams [Unknown]
  - Stress [Unknown]
  - Urine abnormality [Unknown]
  - Back pain [Unknown]
  - Crying [Unknown]
  - Product use complaint [Unknown]

NARRATIVE: CASE EVENT DATE: 20220201
